FAERS Safety Report 4757356-X (Version None)
Quarter: 2005Q3

REPORT INFORMATION
  Report Type: 
  Country: None (occurrence: None)
  Receive Date: 20050831
  Receipt Date: 20050712
  Transmission Date: 20060218
  Serious: Yes (Hospitalization)
  Sender: FDA-Public Use
  Company Number: FR-JNJFOC-20050702517

PATIENT
  Age: 32 Year
  Sex: Male

DRUGS (2)
  1. RISPERDAL CONSTA [Suspect]
     Route: 030
  2. PARKINANE [Concomitant]

REACTIONS (1)
  - INFLAMMATORY BOWEL DISEASE [None]
